FAERS Safety Report 14541415 (Version 1)
Quarter: 2018Q1

REPORT INFORMATION
  Report Type: Spontaneous
  Country: DE (occurrence: DE)
  Receive Date: 20180216
  Receipt Date: 20180216
  Transmission Date: 20180509
  Serious: Yes (Other)
  Sender: FDA-Public Use
  Company Number: DE-OTSUKA-DJ20094464

PATIENT
  Sex: Male

DRUGS (4)
  1. TAVOR (LORAZEPAM) [Suspect]
     Active Substance: LORAZEPAM
     Indication: PRODUCT USED FOR UNKNOWN INDICATION
     Dosage: UNK
     Route: 042
  2. OPC-14597 [Suspect]
     Active Substance: CILOSTAZOL
     Indication: PSYCHOTIC DISORDER
     Dosage: 9.79 MG, UNK
     Route: 030
  3. OPC-14597 [Suspect]
     Active Substance: CILOSTAZOL
     Indication: ALCOHOLISM
  4. ABILIFY [Suspect]
     Active Substance: ARIPIPRAZOLE
     Indication: PSYCHOTIC DISORDER
     Dosage: 10 MG, UNK
     Route: 048

REACTIONS (1)
  - Respiratory rate decreased [Recovered/Resolved]
